FAERS Safety Report 6018100-1 (Version None)
Quarter: 2008Q4

REPORT INFORMATION
  Report Type: 
  Country: None (occurrence: None)
  Receive Date: 20081223
  Receipt Date: 20081216
  Transmission Date: 20090506
  Serious: Yes (Hospitalization, Other)
  Sender: FDA-Public Use
  Company Number: CA-JNJFOC-20081000053

PATIENT
  Sex: Female
  Weight: 102 kg

DRUGS (2)
  1. REMICADE [Suspect]
     Route: 042
  2. REMICADE [Suspect]
     Indication: SKIN DISORDER
     Route: 042

REACTIONS (2)
  - FALL [None]
  - HUMERUS FRACTURE [None]
